FAERS Safety Report 7419503-0 (Version None)
Quarter: 2011Q1

REPORT INFORMATION
  Report Type: 
  Country: None (occurrence: None)
  Receive Date: 20110302
  Receipt Date: 20101029
  Transmission Date: 20110831
  Serious: No
  Sender: FDA-Public Use
  Company Number: 021341

PATIENT
  Sex: Female

DRUGS (1)
  1. CIMZIA [Suspect]
     Dosage: (SUBCUTANEOUS)
     Route: 058
     Dates: start: 20100907

REACTIONS (5)
  - DEFAECATION URGENCY [None]
  - DRUG INEFFECTIVE [None]
  - DIARRHOEA [None]
  - HAEMATOCHEZIA [None]
  - FLATULENCE [None]
